FAERS Safety Report 8301805-7 (Version None)
Quarter: 2012Q2

REPORT INFORMATION
  Report Type: 
  Country: None (occurrence: None)
  Receive Date: 20120418
  Receipt Date: 20120418
  Transmission Date: 20120825
  Serious: Yes (Hospitalization, Other)
  Sender: FDA-Public Use
  Company Number: None

PATIENT
  Age: 11 Year
  Sex: Male

DRUGS (12)
  1. CONCERTA [Concomitant]
  2. PROZAC [Concomitant]
  3. ZYRTEC [Concomitant]
  4. CLONIDINE HCL [Concomitant]
  5. KEPPRA [Suspect]
  6. TRAZODONE HCL [Concomitant]
  7. ALBUTEROL [Concomitant]
  8. ADVAIR DISKUS 100/50 [Concomitant]
  9. KAPVAY [Suspect]
     Dosage: 0.1 MG QAM AND 0.2 MG QHS
  10. SINGULAIR [Concomitant]
  11. MELATONIN [Concomitant]
  12. PREVACID [Concomitant]

REACTIONS (5)
  - SEDATION [None]
  - IRREGULAR SLEEP PHASE [None]
  - PSYCHOMOTOR HYPERACTIVITY [None]
  - MOOD ALTERED [None]
  - HALLUCINATION, VISUAL [None]
